FAERS Safety Report 15814336 (Version 1)
Quarter: 2019Q1

REPORT INFORMATION
  Report Type: Spontaneous
  Country: PT (occurrence: PT)
  Receive Date: 20190111
  Receipt Date: 20190111
  Transmission Date: 20190417
  Serious: Yes (Disabling)
  Sender: FDA-Public Use
  Company Number: PT-PFIZER INC-2019013063

PATIENT
  Age: 33 Year
  Sex: Female

DRUGS (2)
  1. SALAZOPIRINA EN [Suspect]
     Active Substance: SULFASALAZINE
     Indication: AUTOIMMUNE DISORDER
     Dosage: 2500 MG, UNK
     Route: 048
     Dates: start: 20171031, end: 20171110
  2. FOLIC ACID. [Concomitant]
     Active Substance: FOLIC ACID

REACTIONS (6)
  - Decreased appetite [Recovered/Resolved]
  - Dizziness [Recovered/Resolved]
  - Myalgia [Recovered/Resolved]
  - Nausea [Recovered/Resolved]
  - Vomiting [Recovered/Resolved]
  - Generalised erythema [Recovered/Resolved]

NARRATIVE: CASE EVENT DATE: 20171031
